FAERS Safety Report 8130294-0 (Version None)
Quarter: 2012Q1

REPORT INFORMATION
  Report Type: 
  Country: None (occurrence: None)
  Receive Date: 20120210
  Receipt Date: 20120207
  Transmission Date: 20120608
  Serious: Yes (Hospitalization, Other)
  Sender: FDA-Public Use
  Company Number: PHHY2012DZ011081

PATIENT
  Age: 48 Year
  Sex: Female

DRUGS (1)
  1. VALSARTAN [Suspect]
     Indication: HYPERTENSION
     Dosage: 80 MG, DAILY
     Route: 048
     Dates: end: 20110117

REACTIONS (4)
  - ALVEOLITIS [None]
  - DYSPNOEA [None]
  - CHEST PAIN [None]
  - COUGH [None]
